FAERS Safety Report 17336277 (Version 2)
Quarter: 2020Q1

REPORT INFORMATION
  Report Type: Other
  Country: FR (occurrence: FR)
  Receive Date: 20200128
  Receipt Date: 20200213
  Transmission Date: 20200409
  Serious: Yes (Hospitalization)
  Sender: FDA-Public Use
  Company Number: FR-DEXPHARM-20200069

PATIENT
  Age: 51 Year
  Sex: Male

DRUGS (9)
  1. AMLOR [Concomitant]
     Active Substance: AMLODIPINE BESYLATE
  2. METFORMIN [Concomitant]
     Active Substance: METFORMIN HYDROCHLORIDE
  3. ATENOLOL. [Concomitant]
     Active Substance: ATENOLOL
  4. ASPIRIN. [Suspect]
     Active Substance: ASPIRIN
  5. CRESTOR [Concomitant]
     Active Substance: ROSUVASTATIN CALCIUM
  6. COLCHICINE. [Concomitant]
     Active Substance: COLCHICINE
  7. RAMIPRIL. [Concomitant]
     Active Substance: RAMIPRIL
  8. PANTOPRAZOLE [Concomitant]
     Active Substance: PANTOPRAZOLE
  9. DICLOFENAC NON DEXCEL PRODUCT [Suspect]
     Active Substance: DICLOFENAC
     Route: 061

REACTIONS (1)
  - Nephrotic syndrome [Recovered/Resolved]
